FAERS Safety Report 26151273 (Version 1)
Quarter: 2025Q4

REPORT INFORMATION
  Report Type: Spontaneous
  Country: CA (occurrence: CA)
  Receive Date: 20251212
  Receipt Date: 20251212
  Transmission Date: 20260118
  Serious: Yes (Other)
  Sender: PFIZER
  Company Number: CA-PFIZER INC-202500240556

PATIENT
  Age: 62 Year
  Sex: Female

DRUGS (3)
  1. IXIFI [Suspect]
     Active Substance: INFLIXIMAB-QBTX
     Indication: Crohn^s disease
     Dosage: 700 MG, EVERY 5 WEEKS
     Route: 042
     Dates: start: 20250716
  2. IXIFI [Suspect]
     Active Substance: INFLIXIMAB-QBTX
     Dosage: 700 MG, EVERY 5 WEEKS
     Route: 042
     Dates: start: 20251029
  3. IXIFI [Suspect]
     Active Substance: INFLIXIMAB-QBTX
     Dosage: 700 MG, EVERY 5 WEEKS
     Route: 042
     Dates: start: 20251205

REACTIONS (5)
  - Diabetes mellitus [Unknown]
  - Decreased appetite [Unknown]
  - Nausea [Unknown]
  - Vomiting [Unknown]
  - Weight decreased [Unknown]

NARRATIVE: CASE EVENT DATE: 20250101
